FAERS Safety Report 23222339 (Version 1)
Quarter: 2023Q4

REPORT INFORMATION
  Report Type: Spontaneous
  Country: FR (occurrence: FR)
  Receive Date: 20231123
  Receipt Date: 20231123
  Transmission Date: 20240109
  Serious: Yes (Other)
  Sender: FDA-Public Use
  Company Number: FR-BRISTOL-MYERS SQUIBB COMPANY-2023-168287

PATIENT
  Age: 92 Year
  Sex: Male
  Weight: 87 kg

DRUGS (1)
  1. ELIQUIS [Suspect]
     Active Substance: APIXABAN
     Indication: Cerebrovascular accident
     Dosage: FREQUENCY: MORNING AND EVENING

REACTIONS (6)
  - Fall [Unknown]
  - Asthenia [Unknown]
  - Full blood count decreased [Unknown]
  - Cough [Unknown]
  - Pulmonary oedema [Unknown]
  - Gait inability [Unknown]

NARRATIVE: CASE EVENT DATE: 20231119
